FAERS Safety Report 4635266-6 (Version None)
Quarter: 2005Q2

REPORT INFORMATION
  Report Type: 
  Country: None (occurrence: None)
  Receive Date: 20050411
  Receipt Date: 20050329
  Transmission Date: 20051028
  Serious: Yes (Death)
  Sender: FDA-Public Use
  Company Number: 430029N05USA

PATIENT
  Age: 62 Year
  Sex: Male

DRUGS (2)
  1. NOVANTRONE [Suspect]
  2. GEMTUZUMAB OZOGAMICIN [Suspect]
     Indication: ACUTE MYELOID LEUKAEMIA
     Dosage: 10 MG, ONCE, INTRAVENOUS (NOT OTHERWISE SPECIFIED)
     Route: 042

REACTIONS (9)
  - DISEASE PROGRESSION [None]
  - DRUG TOXICITY [None]
  - DYSPNOEA EXACERBATED [None]
  - FLUID OVERLOAD [None]
  - HYPOVOLAEMIA [None]
  - INFECTION [None]
  - PNEUMONIA [None]
  - RENAL FAILURE ACUTE [None]
  - RESPIRATORY DISTRESS [None]
